FAERS Safety Report 5346110-6 (Version None)
Quarter: 2007Q2

REPORT INFORMATION
  Report Type: 
  Country: None (occurrence: None)
  Receive Date: 20070427
  Receipt Date: 20070220
  Transmission Date: 20071010
  Serious: No
  Sender: FDA-Public Use
  Company Number: 2007-US-000174

PATIENT
  Age: 11 Year
  Sex: Male
  Weight: 23.3 kg

DRUGS (2)
  1. INCRELEX [Suspect]
     Indication: GROWTH RETARDATION
     Dosage: 1 MG, BID
     Dates: start: 20061207, end: 20070207
  2. ADDERALL XR (AMFETAMINE ASPARTATE, AMFETAMINE, SULFATE, DEXAMFETAMINE [Concomitant]

REACTIONS (3)
  - INJECTION SITE ERYTHEMA [None]
  - INJECTION SITE SWELLING [None]
  - INJECTION SITE URTICARIA [None]
